FAERS Safety Report 15375979 (Version 2)
Quarter: 2018Q4

REPORT INFORMATION
  Report Type: Spontaneous
  Country: JP (occurrence: JP)
  Receive Date: 20180912
  Receipt Date: 20181023
  Transmission Date: 20190204
  Serious: Yes (Life-Threatening, Hospitalization, Other)
  Sender: FDA-Public Use
  Company Number: JP-009507513-1809JPN000885J

PATIENT
  Age: 70 Year
  Sex: Male
  Weight: 79 kg

DRUGS (11)
  1. DIPRIVAN [Suspect]
     Active Substance: PROPOFOL
     Indication: GENERAL ANAESTHESIA
     Dosage: UNK
     Route: 042
     Dates: start: 20180319, end: 20180319
  2. LAC-B [Concomitant]
     Active Substance: BIFIDOBACTERIUM SPP.
     Dosage: 3 DF, UNK
     Route: 048
     Dates: end: 20180318
  3. MAGCOROL P [Concomitant]
     Active Substance: MAGNESIUM CITRATE
     Dosage: 50 G, UNK
     Route: 048
     Dates: start: 20180318, end: 20180318
  4. LIPIDIL [Concomitant]
     Active Substance: FENOFIBRATE
     Indication: HYPERLIPIDAEMIA
     Dosage: 80 MG, UNK
     Route: 048
     Dates: end: 20180318
  5. MICOMBI [Concomitant]
     Active Substance: HYDROCHLOROTHIAZIDE\TELMISARTAN
     Indication: HYPERTENSION
     Dosage: UNK
     Route: 048
     Dates: end: 20180317
  6. SODIUM PICOSULFATE HYDRATE [Concomitant]
     Active Substance: SODIUM PICOSULFATE
     Dosage: 5 MG/KG, UNK
     Route: 048
     Dates: start: 20180317, end: 20180317
  7. ESLAX INTRAVENOUS 25MG/2.5ML [Suspect]
     Active Substance: ROCURONIUM BROMIDE
     Indication: NEUROMUSCULAR BLOCKING THERAPY
     Dosage: 50 MG, UNK
     Route: 042
     Dates: start: 20180319, end: 20180319
  8. CEFMETAZOLE NA [Suspect]
     Active Substance: CEFMETAZOLE
     Indication: INFECTION
     Dosage: 1 G, UNK
     Route: 042
     Dates: start: 20180319, end: 20180319
  9. NESINA [Concomitant]
     Active Substance: ALOGLIPTIN BENZOATE
     Indication: TYPE 2 DIABETES MELLITUS
     Dosage: 25 MG, UNK
     Route: 048
     Dates: end: 20180317
  10. AMARYL [Concomitant]
     Active Substance: GLIMEPIRIDE
     Indication: TYPE 2 DIABETES MELLITUS
     Dosage: 1 MG, UNK
     Route: 048
     Dates: end: 20180317
  11. ULTIVA [Concomitant]
     Active Substance: REMIFENTANIL HYDROCHLORIDE
     Indication: GENERAL ANAESTHESIA
     Dosage: 0.5 MG, UNK
     Route: 042
     Dates: start: 20180319, end: 20180319

REACTIONS (4)
  - Anaphylactic shock [Recovered/Resolved]
  - Atrioventricular block [Recovering/Resolving]
  - Angina unstable [Recovering/Resolving]
  - Kounis syndrome [Unknown]

NARRATIVE: CASE EVENT DATE: 20180319
